FAERS Safety Report 11422114 (Version 1)
Quarter: 2015Q3

REPORT INFORMATION
  Report Type: Spontaneous
  Country: DE (occurrence: DE)
  Receive Date: 20150827
  Receipt Date: 20150827
  Transmission Date: 20151125
  Serious: Yes (Other)
  Sender: FDA-Public Use
  Company Number: DE-BRISTOL-MYERS SQUIBB COMPANY-BMS-2015-055058

PATIENT

DRUGS (1)
  1. IPILIMUMAB [Suspect]
     Active Substance: IPILIMUMAB
     Indication: BRAIN NEOPLASM
     Dosage: 100 MG, UNK
     Route: 065

REACTIONS (3)
  - Vomiting [Unknown]
  - Intracranial pressure increased [Unknown]
  - Off label use [Unknown]
